FAERS Safety Report 12908449 (Version 2)
Quarter: 2016Q4

REPORT INFORMATION
  Report Type: Spontaneous
  Country: PT (occurrence: PT)
  Receive Date: 20161103
  Receipt Date: 20161206
  Transmission Date: 20170207
  Serious: Yes (Hospitalization)
  Sender: FDA-Public Use
  Company Number: PT-ABBVIE-16P-130-1766845-00

PATIENT
  Age: 61 Year
  Sex: Male

DRUGS (13)
  1. NIFEDIPINE. [Interacting]
     Active Substance: NIFEDIPINE
     Indication: HYPERTENSION
     Dosage: MANY TIME BEFORE VE
     Route: 048
     Dates: end: 20161026
  2. EXVIERA [Interacting]
     Active Substance: DASABUVIR
     Indication: HEPATITIS C
     Route: 048
     Dates: start: 201610, end: 20161026
  3. EXVIERA [Interacting]
     Active Substance: DASABUVIR
     Route: 048
     Dates: start: 20161027
  4. ATENOLOL. [Concomitant]
     Active Substance: ATENOLOL
     Dosage: MANY TIME BEFORE VE
  5. RBESARTAN [Concomitant]
     Dosage: MANY TIME BEFORE VE
  6. VIEKIRAX [Interacting]
     Active Substance: OMBITASVIR\PARITAPREVIR\RITONAVIR
     Dosage: DAILY DOSE 25/150/100MG
     Route: 048
     Dates: start: 20161027
  7. RBESARTAN [Concomitant]
     Dosage: MANY TIME BEFORE VE
  8. RBESARTAN [Concomitant]
     Indication: HYPERTENSION
     Dosage: MANY TIME BEFORE VE
  9. AMLODIPINE [Concomitant]
     Active Substance: AMLODIPINE BESYLATE
     Indication: HYPERTENSION
     Route: 048
     Dates: start: 20161027
  10. CHLORTALIDONE [Concomitant]
     Active Substance: CHLORTHALIDONE
     Indication: HYPERTENSION
     Dosage: MANY TIME BEFORE VE
  11. VIEKIRAX [Suspect]
     Active Substance: OMBITASVIR\PARITAPREVIR\RITONAVIR
     Indication: HEPATITIS C
     Dosage: DAILY DOSE 25/150/100MG
     Route: 048
     Dates: start: 201610, end: 20161026
  12. ATENOLOL. [Concomitant]
     Active Substance: ATENOLOL
     Indication: HYPERTENSION
     Route: 048
     Dates: start: 20161027
  13. AMLODIPINE [Concomitant]
     Active Substance: AMLODIPINE BESYLATE
     Dosage: MANY TIME BEFORE VE

REACTIONS (3)
  - Peripheral swelling [Recovered/Resolved]
  - Swelling face [Recovered/Resolved]
  - Drug interaction [Unknown]

NARRATIVE: CASE EVENT DATE: 201610
